FAERS Safety Report 9614170 (Version 1)
Quarter: 2013Q4

REPORT INFORMATION
  Report Type: Spontaneous
  Country: US (occurrence: US)
  Receive Date: 20131011
  Receipt Date: 20131011
  Transmission Date: 20140711
  Serious: No
  Sender: FDA-Public Use
  Company Number: US-BIOGENIDEC-2013BI097357

PATIENT
  Age: 36 Year
  Sex: Male

DRUGS (1)
  1. TYSABRI [Suspect]
     Indication: MULTIPLE SCLEROSIS
     Route: 042
     Dates: start: 20100809, end: 20120813

REACTIONS (8)
  - Cognitive disorder [Not Recovered/Not Resolved]
  - Confusional state [Not Recovered/Not Resolved]
  - Mood swings [Not Recovered/Not Resolved]
  - Optic neuritis [Not Recovered/Not Resolved]
  - Migraine [Not Recovered/Not Resolved]
  - Incontinence [Not Recovered/Not Resolved]
  - General physical health deterioration [Unknown]
  - Multiple sclerosis relapse [Recovered/Resolved with Sequelae]
